FAERS Safety Report 8802024 (Version 3)
Quarter: 2012Q4

REPORT INFORMATION
  Report Type: 
  Country: US (occurrence: US)
  Receive Date: 20120921
  Receipt Date: 20121023
  Transmission Date: 20130627
  Serious: Yes (Other)
  Sender: FDA-Public Use
  Company Number: US-TEVA-360002USA

PATIENT
  Sex: Female

DRUGS (1)
  1. HYDROXYCARBAMIDE [Suspect]
     Indication: PLATELET COUNT INCREASED
     Dates: start: 2003

REACTIONS (3)
  - Oesophageal ulcer [Unknown]
  - Barrett^s oesophagus [Unknown]
  - Gastrooesophageal reflux disease [Unknown]
